FAERS Safety Report 11122106 (Version 2)
Quarter: 2015Q2

REPORT INFORMATION
  Report Type: Report from Study
  Country: NL (occurrence: NL)
  Receive Date: 20150519
  Receipt Date: 20150616
  Transmission Date: 20150821
  Serious: Yes (Hospitalization)
  Sender: FDA-Public Use
  Company Number: PHHY2015NL057950

PATIENT
  Age: 50 Year
  Sex: Female

DRUGS (18)
  1. CALCITAB D (CALCIUM/COLECALCIFEROL) [Concomitant]
     Indication: PRODUCT USED FOR UNKNOWN INDICATION
     Dosage: 500 MG - 800 IU, QD
     Route: 048
     Dates: start: 20150506
  2. ZOMETA [Suspect]
     Active Substance: ZOLEDRONIC ACID
     Indication: METASTASES TO BONE
     Dosage: 4 MG/100ML (0.04 MG/ML), CONTINUOUS (PARENTERAL), QMO
     Route: 042
     Dates: start: 201409
  3. SERETIDE [Concomitant]
     Active Substance: FLUTICASONE FUROATE\SALMETEROL XINAFOATE
     Indication: PRODUCT USED FOR UNKNOWN INDICATION
     Dosage: 25/250 MCG/DO, 3 DD 2 DO
     Route: 055
  4. OMEPRAZOLE. [Concomitant]
     Active Substance: OMEPRAZOLE
     Indication: PRODUCT USED FOR UNKNOWN INDICATION
     Dosage: 20 MG, QD (IN THE MORNING 1 CAPSULE)
     Route: 048
     Dates: start: 20150426
  5. MACROGOL [Concomitant]
     Active Substance: POLYETHYLENE GLYCOLS
     Indication: PRODUCT USED FOR UNKNOWN INDICATION
     Dosage: QD (FIRST DISSOLVE IN WATER)
     Route: 048
     Dates: start: 20150427
  6. PARACETAMOL [Concomitant]
     Active Substance: ACETAMINOPHEN
     Indication: PRODUCT USED FOR UNKNOWN INDICATION
     Dosage: 500 MG, (4 DD 2)
     Route: 048
     Dates: start: 20150426
  7. TIOTROPIUM [Concomitant]
     Active Substance: TIOTROPIUM
     Indication: PRODUCT USED FOR UNKNOWN INDICATION
     Dosage: 18 UG, QD (1 DD 1 DO)
     Route: 055
     Dates: start: 20150426
  8. METOCLOPRAMIDE. [Concomitant]
     Active Substance: METOCLOPRAMIDE
     Indication: PRODUCT USED FOR UNKNOWN INDICATION
     Dosage: 10 MG, PRN (AT LEAST HALF AN HOUR BEFORE THE MEAL, 3 DD 1 TABLET) (ACCORDING TO APPOINTMENT)
     Route: 048
     Dates: start: 20150426
  9. IRBESARTAN. [Concomitant]
     Active Substance: IRBESARTAN
     Indication: PRODUCT USED FOR UNKNOWN INDICATION
     Dosage: 150 MG, QD (1 TABLET IN THE MORNING)
     Route: 048
     Dates: start: 20150430
  10. SALBUTAMOL [Concomitant]
     Active Substance: ALBUTEROL
     Indication: PRODUCT USED FOR UNKNOWN INDICATION
     Dosage: 200 UG, PRN (4 TIMES A DAILY 1 INHALATION) (ACCORDING TO APPOINTMENT)
     Route: 055
     Dates: start: 20150426
  11. MONTELUKAST [Concomitant]
     Active Substance: MONTELUKAST SODIUM
     Indication: PRODUCT USED FOR UNKNOWN INDICATION
     Dosage: 10 MG, QD (1 DD 1) (1 TABLET BEFORE THE SLEEPING)
     Route: 048
     Dates: start: 20150426
  12. CETIRIZINE [Concomitant]
     Active Substance: CETIRIZINE HYDROCHLORIDE
     Indication: PRODUCT USED FOR UNKNOWN INDICATION
     Dosage: 10 MG, QD (1 DD 1)
     Route: 048
     Dates: start: 20150426
  13. CIPROFLOXACIN. [Concomitant]
     Active Substance: CIPROFLOXACIN
     Indication: PRODUCT USED FOR UNKNOWN INDICATION
     Dosage: 50 MG/ML, QD
     Route: 048
  14. FENTANYL. [Concomitant]
     Active Substance: FENTANYL
     Indication: PRODUCT USED FOR UNKNOWN INDICATION
     Dosage: 75 UG/HR, ONCE EVERY 3 DAYS 1 PATCH (ACCORDING TO APPOINTMENT)
     Route: 062
     Dates: start: 20150426
  15. CROMOGLICAAT DINATRIUM [Concomitant]
     Indication: PRODUCT USED FOR UNKNOWN INDICATION
     Dosage: 5MG/DOS DA 112DO, 4 DD 2 DO (2 INHALATIONS 4 TIMES DAILY 2 INHALATIONS)
     Route: 055
     Dates: start: 20150426
  16. DEXAMETHASONE. [Concomitant]
     Active Substance: DEXAMETHASONE
     Indication: PRODUCT USED FOR UNKNOWN INDICATION
     Dosage: 4 MG, 2 X 1 PIECE ON THE DAY OF CHEMO
     Route: 048
     Dates: start: 20150426
  17. LEVOTHYROXINE [Concomitant]
     Active Substance: LEVOTHYROXINE
     Indication: PRODUCT USED FOR UNKNOWN INDICATION
     Dosage: 25 UG, QD (INTAKE AT LEAST HALF AN HOUR BEFORE BREAKFAST)
     Route: 048
     Dates: start: 20150426
  18. LEVOCETIRIZINE [Concomitant]
     Active Substance: LEVOCETIRIZINE
     Indication: PRODUCT USED FOR UNKNOWN INDICATION
     Dosage: 5 MG, QD (1X1) PC.
     Route: 065

REACTIONS (1)
  - Pneumonia [Recovered/Resolved]

NARRATIVE: CASE EVENT DATE: 201503
